FAERS Safety Report 5959360-2 (Version None)
Quarter: 2008Q4

REPORT INFORMATION
  Report Type: 
  Country: None (occurrence: None)
  Receive Date: 20081117
  Receipt Date: 20081110
  Transmission Date: 20090506
  Serious: No
  Sender: FDA-Public Use
  Company Number: 08H-087-0315159-00

PATIENT
  Age: 79 Year
  Sex: Male
  Weight: 55 kg

DRUGS (11)
  1. PRECEDEX [Suspect]
     Indication: SEDATION
     Dosage: 0.4 MCG/KG/HR,  INTRAVENOUS
     Route: 042
     Dates: start: 20070729, end: 20070730
  2. ASPIRIN [Concomitant]
  3. CILASTAZOL (CILOSTAZOL) [Concomitant]
  4. AMLODIPINE BESYLATE [Concomitant]
  5. GLIMEPIRIDE [Concomitant]
  6. PROPOFOL [Concomitant]
  7. FENTANYL CITRATE [Concomitant]
  8. VECURONIUM BROMIDE [Concomitant]
  9. PHENYLEPHRINE HYDROCHLORIDE (PHENYLEPHRINE HYDROCHLORIDE) [Concomitant]
  10. DOPAMINE HCL [Concomitant]
  11. INSULIN (INSULIN) [Concomitant]

REACTIONS (3)
  - BLOOD ALBUMIN DECREASED [None]
  - BLOOD BILIRUBIN INCREASED [None]
  - CONDITION AGGRAVATED [None]
